FAERS Safety Report 12982703 (Version 2)
Quarter: 2016Q4

REPORT INFORMATION
  Report Type: Spontaneous
  Country: US (occurrence: US)
  Receive Date: 20161129
  Receipt Date: 20161223
  Transmission Date: 20170207
  Serious: Yes (Other)
  Sender: FDA-Public Use
  Company Number: US-ELI_LILLY_AND_COMPANY-US201611006423

PATIENT
  Age: 57 Year
  Sex: Female

DRUGS (1)
  1. GEMCITABINE HYDROCHLORIDE. [Suspect]
     Active Substance: GEMCITABINE HYDROCHLORIDE
     Indication: OVARIAN CANCER METASTATIC
     Dosage: UNK, CYCLICAL EVERY 2 WEEKS
     Route: 042
     Dates: start: 2014

REACTIONS (10)
  - Blood creatinine increased [Unknown]
  - Abdominal distension [Unknown]
  - Anaemia [Unknown]
  - Fatigue [Unknown]
  - Thrombotic microangiopathy [Unknown]
  - Hypertension [Recovered/Resolved]
  - Swelling face [Unknown]
  - Platelet count decreased [Unknown]
  - Haemoglobin decreased [Unknown]
  - Oedema peripheral [Unknown]
